FAERS Safety Report 25447122 (Version 2)
Quarter: 2025Q3

REPORT INFORMATION
  Report Type: Spontaneous
  Country: US (occurrence: US)
  Receive Date: 20250617
  Receipt Date: 20250714
  Transmission Date: 20251021
  Serious: No
  Sender: SANOFI AVENTIS
  Company Number: US-SA-2025SA169211

PATIENT
  Age: 3 Year
  Sex: Female

DRUGS (5)
  1. DUPIXENT [Suspect]
     Active Substance: DUPILUMAB
     Indication: Eczema
     Dosage: 200 MG, Q4W
     Route: 058
     Dates: start: 20250307
  2. DEXAMETHASONE [Concomitant]
     Active Substance: DEXAMETHASONE
     Dates: start: 20250612
  3. MUPIROCIN [Concomitant]
     Active Substance: MUPIROCIN
     Dosage: 1 DF, BID
     Route: 061
  4. TACROLIMUS [Concomitant]
     Active Substance: TACROLIMUS
     Route: 061
  5. PREDNISONE [Concomitant]
     Active Substance: PREDNISONE
     Dosage: 1 DF, QD
     Route: 048

REACTIONS (4)
  - Middle ear effusion [Unknown]
  - Eczema [Recovered/Resolved]
  - Skin haemorrhage [Recovered/Resolved]
  - Skin burning sensation [Recovered/Resolved]

NARRATIVE: CASE EVENT DATE: 20250101
